FAERS Safety Report 4774831-2 (Version None)
Quarter: 2005Q3

REPORT INFORMATION
  Report Type: 
  Country: None (occurrence: None)
  Receive Date: 20050921
  Receipt Date: 20050907
  Transmission Date: 20060218
  Serious: Yes (Other)
  Sender: FDA-Public Use
  Company Number: 200518183GDDC

PATIENT
  Sex: 0

DRUGS (2)
  1. ARAVA [Suspect]
     Dosage: DOSE: UNK
  2. METHOTREXATE [Concomitant]
     Dosage: DOSE: UNK

REACTIONS (1)
  - HYPERTENSIVE CRISIS [None]
